FAERS Safety Report 6896517-0 (Version None)
Quarter: 2010Q3

REPORT INFORMATION
  Report Type: 
  Country: None (occurrence: None)
  Receive Date: 20100802
  Receipt Date: 20090306
  Transmission Date: 20110219
  Serious: No
  Sender: FDA-Public Use
  Company Number: US-PFIZER INC-2009178258

PATIENT
  Sex: Male

DRUGS (8)
  1. NORVASC [Suspect]
     Dosage: 10 MG, UNK
  2. PROTONIX [Concomitant]
     Dosage: 40 MG, UNK
  3. NAMENDA [Concomitant]
     Dosage: 10 MG, UNK
  4. ALTACE [Concomitant]
     Dosage: UNK MG, UNK
  5. TOPROL-XL [Concomitant]
     Dosage: 25 MG, UNK
  6. ASPIRIN [Concomitant]
     Dosage: 81 MG, UNK
  7. XALATAN [Concomitant]
  8. ALL OTHER THERAPEUTIC PRODUCTS [Concomitant]

REACTIONS (3)
  - DECREASED APPETITE [None]
  - NAUSEA [None]
  - WEIGHT DECREASED [None]
